FAERS Safety Report 5672426-X (Version None)
Quarter: 2008Q1

REPORT INFORMATION
  Report Type: 
  Country: None (occurrence: None)
  Receive Date: 20080317
  Receipt Date: 20080311
  Transmission Date: 20080703
  Serious: Yes (Other)
  Sender: FDA-Public Use
  Company Number: 2008002028

PATIENT
  Age: 48 Year
  Sex: Female
  Weight: 72.5755 kg

DRUGS (1)
  1. LISTERINE WHITENING PRE-BRUSH RINSE (NO ACTIVE INGREDIENT) [Suspect]
     Indication: DENTAL CARE
     Dosage: TWO TIMES, ORAL
     Route: 048
     Dates: start: 20070118, end: 20070118

REACTIONS (5)
  - GLOSSODYNIA [None]
  - ORAL DISCOMFORT [None]
  - ORAL PAIN [None]
  - OROPHARYNGEAL BLISTERING [None]
  - STOMATITIS [None]
